FAERS Safety Report 9665620 (Version 1)
Quarter: 2013Q4

REPORT INFORMATION
  Report Type: Spontaneous
  Country: US (occurrence: None)
  Receive Date: 20131031
  Receipt Date: 20131031
  Transmission Date: 20140711
  Serious: Yes (Hospitalization)
  Sender: FDA-Public Use
  Company Number: None

PATIENT
  Age: 79 Year
  Sex: Male
  Weight: 71 kg

DRUGS (2)
  1. OMEPRAZOLE [Suspect]
     Indication: PEPTIC ULCER
     Route: 048
     Dates: start: 20130912, end: 20131027
  2. SULFAMETHOXAZOLE/TRIMETHOPRIM [Suspect]
     Indication: URINARY TRACT INFECTION
     Dosage: 1 TAB BID PO
     Dates: start: 20130906, end: 20131006

REACTIONS (4)
  - Fatigue [None]
  - Nausea [None]
  - Renal failure acute [None]
  - Rash [None]
